FAERS Safety Report 23897306 (Version 1)
Quarter: 2024Q2

REPORT INFORMATION
  Report Type: Spontaneous
  Country: AU (occurrence: AU)
  Receive Date: 20240524
  Receipt Date: 20240524
  Transmission Date: 20240716
  Serious: Yes (Life-Threatening, Hospitalization, Other)
  Sender: FDA-Public Use
  Company Number: AU-ANIPHARMA-2024-AU-000251

PATIENT
  Age: 56 Year
  Sex: Female

DRUGS (13)
  1. ANASTROZOLE [Suspect]
     Active Substance: ANASTROZOLE
     Indication: Breast cancer
     Dosage: 1 MG QD
  2. METFORMIN HYDROCHLORIDE [Suspect]
     Active Substance: METFORMIN HYDROCHLORIDE
     Dosage: 0.5 DAY
  3. MONTELUKAST SODIUM [Suspect]
     Active Substance: MONTELUKAST SODIUM
     Dosage: AT NIGHT
  4. ALBUTEROL SULFATE [Suspect]
     Active Substance: ALBUTEROL SULFATE
     Dosage: TIME INTERVAL: AS NECESSARY
  5. PFIZER-BIONTECH COVID-19 VACCINE [Suspect]
     Active Substance: TOZINAMERAN
     Dosage: SECOND DOSE
  6. ESOMEPRAZOLE [Suspect]
     Active Substance: ESOMEPRAZOLE
     Dosage: 0.5 DAY
  7. ROSUVASTATIN CALCIUM [Suspect]
     Active Substance: ROSUVASTATIN CALCIUM
  8. APIXABAN [Suspect]
     Active Substance: APIXABAN
     Dosage: 0.5 DAY
  9. NOVORAPID [Suspect]
     Active Substance: INSULIN ASPART
     Dosage: 0.33 DAY
  10. INSULIN GLARGINE [Suspect]
     Active Substance: INSULIN GLARGINE
     Dosage: 0.5 DAY
  11. PHENERGAN [Suspect]
     Active Substance: PROMETHAZINE HYDROCHLORIDE
  12. FAMOTIDINE [Suspect]
     Active Substance: FAMOTIDINE
     Dosage: 0.5 DAY
  13. LORATADINE [Suspect]
     Active Substance: LORATADINE
     Dosage: 0.5 DAY

REACTIONS (10)
  - Anaphylactic reaction [Recovering/Resolving]
  - Pneumonia [Unknown]
  - Upper respiratory tract infection [Unknown]
  - Respiratory failure [Unknown]
  - Mouth haemorrhage [Unknown]
  - COVID-19 [Unknown]
  - Tongue biting [Unknown]
  - Human rhinovirus test positive [Unknown]
  - Pneumonia haemophilus [Unknown]
  - Respiratory syncytial virus test positive [Unknown]

NARRATIVE: CASE EVENT DATE: 20180718
